FAERS Safety Report 5635977-X (Version None)
Quarter: 2008Q1

REPORT INFORMATION
  Report Type: 
  Country: None (occurrence: None)
  Receive Date: 20080224
  Receipt Date: 20080213
  Transmission Date: 20080703
  Serious: Yes (Other)
  Sender: FDA-Public Use
  Company Number: PHRM2008FR00846

PATIENT
  Sex: Female

DRUGS (7)
  1. FEMARA [Suspect]
     Indication: BREAST CANCER
     Route: 048
  2. ALLOPURINOL [Concomitant]
  3. TANAKAN [Concomitant]
  4. PLAVIX [Concomitant]
  5. MONO-TILDIEM [Concomitant]
  6. DEROXAT [Concomitant]
  7. ENALAPRIL MALEATE [Concomitant]

REACTIONS (3)
  - ARTHRALGIA [None]
  - ASPIRATION JOINT [None]
  - GOUTY ARTHRITIS [None]
